FAERS Safety Report 23896512 (Version 1)
Quarter: 2024Q2

REPORT INFORMATION
  Report Type: Spontaneous
  Country: GB (occurrence: GB)
  Receive Date: 20240524
  Receipt Date: 20240524
  Transmission Date: 20240716
  Serious: Yes (Other)
  Sender: FDA-Public Use
  Company Number: None

PATIENT
  Age: 85 Year
  Sex: Female
  Weight: 73 kg

DRUGS (17)
  1. CLARITHROMYCIN [Suspect]
     Active Substance: CLARITHROMYCIN
     Route: 065
     Dates: start: 20240507
  2. FUROSEMIDE [Concomitant]
     Active Substance: FUROSEMIDE
     Dosage: EACH MORNING,
     Dates: start: 20240307, end: 20240404
  3. LOSARTAN [Concomitant]
     Active Substance: LOSARTAN
     Dates: start: 20230227
  4. ATORVASTATIN [Concomitant]
     Active Substance: ATORVASTATIN
     Dates: start: 20230227
  5. HYPROMELLOSES [Concomitant]
     Active Substance: HYPROMELLOSES
     Dosage: DROP,
     Dates: start: 20230908
  6. METHOTREXATE [Concomitant]
     Active Substance: METHOTREXATE
     Dates: start: 20230227
  7. HYDROMOL [Concomitant]
     Dosage: FOR USE ON FACE,
     Dates: start: 20230330
  8. BUMETANIDE [Concomitant]
     Active Substance: BUMETANIDE
     Dosage: EACH MORNING,
     Dates: start: 20240318
  9. FOLIC ACID [Concomitant]
     Active Substance: FOLIC ACID
     Dosage: TIME INTERVAL: CYCLICAL
     Dates: start: 20240129
  10. DOXYCYCLINE [Concomitant]
     Active Substance: DOXYCYCLINE\DOXYCYCLINE HYCLATE
     Dosage: TWO NOW THEN ONE DAILY,
     Dates: start: 20240307, end: 20240312
  11. BETAMETHASONE VALERATE [Concomitant]
     Active Substance: BETAMETHASONE VALERATE
     Dosage: IN THE MORNING,
     Dates: start: 20230721
  12. MOMETASONE [Concomitant]
     Active Substance: MOMETASONE
     Dosage: BOTH NOSTRILS,
     Route: 045
     Dates: start: 20230526
  13. ERYTHROMYCIN [Concomitant]
     Active Substance: ERYTHROMYCIN
     Dates: start: 20240510
  14. COLCHICINE [Concomitant]
     Active Substance: COLCHICINE
     Dates: start: 20231027, end: 20240507
  15. SEBCO [Concomitant]
     Dosage: IN THE EVENING,
     Dates: start: 20230721
  16. OTOMIZE [Concomitant]
     Dosage: TIME INTERVAL: 0.33333333 DAYS: IN AFFECTED EAR,
     Route: 001
     Dates: start: 20240507
  17. ASPIRIN [Concomitant]
     Active Substance: ASPIRIN
     Dates: start: 20230227

REACTIONS (1)
  - Oral mucosal blistering [Recovering/Resolving]
